FAERS Safety Report 9006481 (Version 2)
Quarter: 2013Q1

REPORT INFORMATION
  Report Type: Spontaneous
  Country: GB (occurrence: None)
  Receive Date: 20121227
  Receipt Date: 20130109
  Transmission Date: 20140127
  Serious: Yes (Life-Threatening, Hospitalization)
  Sender: FDA-Public Use
  Company Number: 2012-22620

PATIENT
  Age: 47 Year
  Sex: Female
  Weight: 65 kg

DRUGS (4)
  1. IBUPROFEN (IBUPROFEN) [Suspect]
     Indication: OSTEOARTHRITIS
     Route: 048
     Dates: start: 200401, end: 20041109
  2. BENDROFLUMETHIAZIDE (BENDRFOFLUMETHIAZIDE) [Concomitant]
  3. VITAMIN C [Concomitant]
  4. MULTIVITAMIN (ASCORBIC ACID, CALCIUM PANTOTHENATE, ERGOCALCIFEROL, NICOTINAMIDE, PYRIDOXINE HYDROCHLORIDE, RETINOL, RIBOFLAVIN, THIAMINE HYDROCHLORIDE) [Concomitant]

REACTIONS (4)
  - Idiopathic thrombocytopenic purpura [None]
  - Haemorrhage [None]
  - Vomiting [None]
  - Overdose [None]
